FAERS Safety Report 4932214-6 (Version None)
Quarter: 2006Q1

REPORT INFORMATION
  Report Type: 
  Country: None (occurrence: None)
  Receive Date: 20060228
  Receipt Date: 20060209
  Transmission Date: 20060701
  Serious: Yes (Hospitalization)
  Sender: FDA-Public Use
  Company Number: JP200511002763

PATIENT
  Age: 69 Year
  Sex: Male
  Weight: 71 kg

DRUGS (11)
  1. GEMZAR [Suspect]
     Indication: PANCREATIC CARCINOMA STAGE IV
     Dosage: 1800 MG, OTHER, INTRAVENOUS
     Route: 042
     Dates: start: 20051101
  2. TS1 /JPN/ (GIMERACIL, OTERACIL POTASSIUM, TEGAFUR) [Concomitant]
  3. NU-LOTAN /JPN/ (LOSARTAN POTASSIUM) [Concomitant]
  4. LOWGAN (AMOSULALOL HYDROCHLORIDE) [Concomitant]
  5. ALLOPURINOL [Concomitant]
  6. TOCOPHERYL ACETATE (TOCOPHERYL ACETATE) [Concomitant]
  7. MS CONTIN [Concomitant]
  8. MAGNESIUM OXIDE (MAGNESIUM OXIDE) [Concomitant]
  9. OMEPRAZOLE [Concomitant]
  10. DECADRON #1 (DEXAMETHASONE SODIUM PHOSPHATE) [Concomitant]
  11. ZOFRAN [Concomitant]

REACTIONS (2)
  - HEPATITIS [None]
  - PERIANAL ABSCESS [None]
